FAERS Safety Report 4538487-6 (Version None)
Quarter: 2004Q4

REPORT INFORMATION
  Report Type: 
  Country: None (occurrence: None)
  Receive Date: 20041221
  Receipt Date: 20041203
  Transmission Date: 20050328
  Serious: Yes (Other)
  Sender: FDA-Public Use
  Company Number: DSA_25480_2004

PATIENT
  Age: 36 Year
  Sex: Female
  Weight: 76 kg

DRUGS (7)
  1. LORAZEPAM [Suspect]
     Indication: SCHIZOPHRENIA
     Dosage: 0.5 MG TID PO
     Route: 048
     Dates: start: 20041117, end: 20041124
  2. LORAZEPAM [Suspect]
     Indication: SCHIZOPHRENIA
     Dosage: 0.5 MG TID PO
     Route: 048
     Dates: start: 20040914, end: 20041024
  3. SERENACE [Concomitant]
  4. HIRNAMIN [Concomitant]
  5. PROMETHAZINE HCL [Concomitant]
  6. ROHYPNOL [Concomitant]
  7. CRAVIT [Concomitant]

REACTIONS (4)
  - CONDITION AGGRAVATED [None]
  - INTERSTITIAL LUNG DISEASE [None]
  - LYMPHOCYTE COUNT DECREASED [None]
  - SCHIZOPHRENIA [None]
